FAERS Safety Report 11694751 (Version 1)
Quarter: 2015Q4

REPORT INFORMATION
  Report Type: Spontaneous
  Country: US (occurrence: US)
  Receive Date: 20151103
  Receipt Date: 20151103
  Transmission Date: 20160304
  Serious: No
  Sender: FDA-Public Use
  Company Number: US-ASTRAZENECA-2015SF01632

PATIENT
  Age: 661 Month
  Sex: Male
  Weight: 111.1 kg

DRUGS (1)
  1. BYDUREON [Suspect]
     Active Substance: EXENATIDE
     Indication: TYPE 2 DIABETES MELLITUS
     Route: 058
     Dates: start: 20150927

REACTIONS (7)
  - Swelling [Unknown]
  - Dry throat [Unknown]
  - Hot flush [Unknown]
  - Headache [Unknown]
  - Oropharyngeal pain [Recovered/Resolved]
  - Injection site nodule [Unknown]
  - Rash [Unknown]

NARRATIVE: CASE EVENT DATE: 201510
